FAERS Safety Report 7000326-1 (Version None)
Quarter: 2010Q3

REPORT INFORMATION
  Report Type: 
  Country: None (occurrence: None)
  Receive Date: 20100920
  Receipt Date: 20100910
  Transmission Date: 20110219
  Serious: Yes (Other)
  Sender: FDA-Public Use
  Company Number: FR-JNJFOC-20100706017

PATIENT
  Sex: Male

DRUGS (8)
  1. DAKTARIN [Suspect]
     Route: 002
     Dates: start: 20100708, end: 20100718
  2. DAKTARIN [Suspect]
     Indication: MOUTH ULCERATION
     Route: 002
     Dates: start: 20100708, end: 20100718
  3. SINTROM [Interacting]
     Indication: PRODUCT USED FOR UNKNOWN INDICATION
     Dosage: 1/4 IN THE EVENING
     Route: 048
     Dates: end: 20100721
  4. OMEPRAZOLE [Concomitant]
     Indication: PRODUCT USED FOR UNKNOWN INDICATION
  5. HYZAAR [Concomitant]
     Indication: PRODUCT USED FOR UNKNOWN INDICATION
  6. EZETROL [Concomitant]
     Indication: PRODUCT USED FOR UNKNOWN INDICATION
  7. LERCANIDIPINE [Concomitant]
     Indication: PRODUCT USED FOR UNKNOWN INDICATION
  8. DIFFU K [Concomitant]
     Indication: PRODUCT USED FOR UNKNOWN INDICATION

REACTIONS (3)
  - BLOOD URINE PRESENT [None]
  - DRUG INTERACTION [None]
  - GINGIVAL BLEEDING [None]
